FAERS Safety Report 8226976-2 (Version None)
Quarter: 2012Q1

REPORT INFORMATION
  Report Type: 
  Country: None (occurrence: None)
  Receive Date: 20120322
  Receipt Date: 20120315
  Transmission Date: 20120608
  Serious: Yes (Other)
  Sender: FDA-Public Use
  Company Number: US-JNJFOC-20120307729

PATIENT
  Sex: Male
  Weight: 122.47 kg

DRUGS (3)
  1. PERCOCET [Concomitant]
     Indication: BREAKTHROUGH PAIN
     Route: 048
  2. FENTANYL-100 [Suspect]
     Indication: INTERVERTEBRAL DISC PROTRUSION
     Dosage: (NDC-0781-7244-55)
     Route: 062
     Dates: start: 20110901
  3. DURAGESIC-100 [Suspect]
     Indication: INTERVERTEBRAL DISC PROTRUSION
     Route: 062
     Dates: start: 20070101

REACTIONS (3)
  - NEPHROLITHIASIS [None]
  - BLOOD TESTOSTERONE DECREASED [None]
  - HYPERPROLACTINAEMIA [None]
